FAERS Safety Report 15853072 (Version 3)
Quarter: 2021Q1

REPORT INFORMATION
  Report Type: Report from Study
  Country: US (occurrence: US)
  Receive Date: 20190122
  Receipt Date: 20210301
  Transmission Date: 20210419
  Serious: No
  Sender: FDA-Public Use
  Company Number: PHEH2019US002943

PATIENT
  Sex: Female

DRUGS (2)
  1. ILARIS [Suspect]
     Active Substance: CANAKINUMAB
     Indication: STILL^S DISEASE
     Dosage: 150 MG(Q4WEEK)
     Route: 058
     Dates: start: 20181125
  2. ILARIS [Suspect]
     Active Substance: CANAKINUMAB
     Indication: STILL^S DISEASE
     Dosage: 150 MG, QMO
     Route: 058

REACTIONS (4)
  - Incorrect dose administered [Unknown]
  - Arthritis [Unknown]
  - Incorrect drug administration rate [Unknown]
  - Arthralgia [Unknown]
